FAERS Safety Report 9803255 (Version 11)
Quarter: 2015Q1

REPORT INFORMATION
  Report Type: Report from Study
  Country: CA (occurrence: CA)
  Receive Date: 20140108
  Receipt Date: 20150204
  Transmission Date: 20150721
  Serious: Yes (Hospitalization, Other)
  Sender: FDA-Public Use
  Company Number: PHHY2010CA85399

PATIENT
  Age: 73 Year
  Sex: Female

DRUGS (6)
  1. RIVOTRIL [Concomitant]
     Active Substance: CLONAZEPAM
     Indication: SLEEP DISORDER
     Route: 065
  2. SANDOSTATIN LAR DEPOT [Suspect]
     Active Substance: OCTREOTIDE ACETATE
     Dosage: 30 MG, EVERY 4 WEEKS
     Route: 030
  3. IMOVANE [Concomitant]
     Active Substance: ZOPICLONE
     Indication: SLEEP DISORDER
     Route: 065
  4. SANDOSTATIN LAR DEPOT [Suspect]
     Active Substance: OCTREOTIDE ACETATE
     Indication: NEUROENDOCRINE TUMOUR
     Dosage: 30 MG, EVERY 4 WEEKS
     Route: 030
  5. SANDOSTATIN LAR DEPOT [Suspect]
     Active Substance: OCTREOTIDE ACETATE
     Dosage: 40 MG, EVERY 28 DAYS
     Route: 030
     Dates: start: 201110
  6. SANDOSTATIN LAR DEPOT [Suspect]
     Active Substance: OCTREOTIDE ACETATE
     Indication: CARCINOID SYNDROME
     Dosage: 20 MG, EVERY 4 WEEKS
     Route: 030
     Dates: start: 20101117

REACTIONS (27)
  - Respiratory disorder [Unknown]
  - Breast discharge [Unknown]
  - Adnexa uteri pain [Unknown]
  - Diarrhoea [Unknown]
  - Blood pressure increased [Unknown]
  - Abdominal discomfort [Unknown]
  - Chest pain [Unknown]
  - Second primary malignancy [Unknown]
  - Breast enlargement [Unknown]
  - Breast pain [Unknown]
  - Vomiting [Unknown]
  - Malaise [Unknown]
  - Invasive ductal breast carcinoma [Unknown]
  - Pain in extremity [Unknown]
  - Mood swings [Unknown]
  - Breast tenderness [Unknown]
  - Heart rate decreased [Unknown]
  - Nausea [Unknown]
  - Premenstrual syndrome [Unknown]
  - Fatigue [Unknown]
  - Back pain [Unknown]
  - Lymphadenopathy [Unknown]
  - Dizziness [Recovered/Resolved]
  - Flatulence [Unknown]
  - Oxygen saturation decreased [Unknown]
  - Breast calcifications [Unknown]
  - Swelling [Unknown]

NARRATIVE: CASE EVENT DATE: 201110
